FAERS Safety Report 4428200-5 (Version None)
Quarter: 2004Q3

REPORT INFORMATION
  Report Type: 
  Country: None (occurrence: None)
  Receive Date: 20040726
  Receipt Date: 20040322
  Transmission Date: 20050211
  Serious: No
  Sender: FDA-Public Use
  Company Number: USA040362283

PATIENT
  Age: 72 Year
  Sex: Female
  Weight: 67 kg

DRUGS (3)
  1. FORTEO [Suspect]
     Indication: OSTEOPOROSIS
     Dosage: 20 UG/1 DAY
     Dates: start: 20040225
  2. FOSAMAX [Concomitant]
  3. ASPIRIN [Concomitant]

REACTIONS (3)
  - BONE FORMATION INCREASED [None]
  - HEADACHE [None]
  - INJECTION SITE HAEMORRHAGE [None]
